FAERS Safety Report 8909472 (Version 1)
Quarter: 2012Q4

REPORT INFORMATION
  Report Type: 
  Country: AU (occurrence: AU)
  Receive Date: 20121114
  Receipt Date: 20121114
  Transmission Date: 20130627
  Serious: Yes (Other)
  Sender: FDA-Public Use
  Company Number: AU-009507513-1211AUS004989

PATIENT

DRUGS (1)
  1. MIRTAZAPINE [Suspect]

REACTIONS (3)
  - Aggression [Recovered/Resolved]
  - Violence-related symptom [Recovered/Resolved]
  - Nightmare [Recovered/Resolved]
